FAERS Safety Report 10153494 (Version 1)
Quarter: 2014Q2

REPORT INFORMATION
  Report Type: Spontaneous
  Country: US (occurrence: US)
  Receive Date: 20140505
  Receipt Date: 20140505
  Transmission Date: 20141212
  Serious: No
  Sender: FDA-Public Use
  Company Number: US-GILEAD-2014-0101373

PATIENT
  Age: 67 Year
  Sex: Male

DRUGS (3)
  1. RANEXA [Suspect]
     Indication: PRODUCT USED FOR UNKNOWN INDICATION
     Dosage: 1000 MG, BID
     Route: 065
     Dates: start: 20140408
  2. RANEXA [Suspect]
     Dosage: 500 MG, BID
     Route: 065
     Dates: start: 20140325
  3. RANEXA [Suspect]
     Dosage: 500 MG, BID
     Route: 065
     Dates: start: 201404

REACTIONS (1)
  - Blood glucose decreased [Unknown]
